FAERS Safety Report 6531490-6 (Version None)
Quarter: 2010Q1

REPORT INFORMATION
  Report Type: 
  Country: None (occurrence: None)
  Receive Date: 20100108
  Receipt Date: 20090305
  Transmission Date: 20100710
  Serious: No
  Sender: FDA-Public Use
  Company Number: US-BAYER-200910745BCC

PATIENT
  Age: 57 Year
  Sex: Female
  Weight: 91 kg

DRUGS (5)
  1. ALEVE (CAPLET) [Suspect]
     Indication: PLANTAR FASCIITIS
     Dosage: UNIT DOSE: 220 MG
     Route: 048
     Dates: start: 20090303, end: 20090303
  2. ALEVE (CAPLET) [Suspect]
     Dosage: UNIT DOSE: 220 MG
     Route: 048
     Dates: start: 20080801, end: 20080801
  3. CLONAZEPAM [Concomitant]
     Indication: DRUG USE FOR UNKNOWN INDICATION
     Dosage: UNIT DOSE: 1 MG
     Route: 065
  4. ATENOLOL [Concomitant]
     Indication: DRUG USE FOR UNKNOWN INDICATION
     Route: 065
  5. THYROID ARMOUR [Concomitant]
     Indication: DRUG USE FOR UNKNOWN INDICATION
     Route: 065

REACTIONS (3)
  - ANXIETY [None]
  - FEELING HOT [None]
  - PANIC ATTACK [None]
